FAERS Safety Report 10035961 (Version 2)
Quarter: 2014Q2

REPORT INFORMATION
  Report Type: Spontaneous
  Country: BR (occurrence: BR)
  Receive Date: 20140325
  Receipt Date: 20140403
  Transmission Date: 20141212
  Serious: Yes (Hospitalization, Other)
  Sender: FDA-Public Use
  Company Number: BR-PFIZER INC-2014080268

PATIENT
  Sex: Male
  Weight: 150 kg

DRUGS (1)
  1. TORISEL [Suspect]
     Indication: RENAL CANCER METASTATIC
     Dosage: 25 MG, ONCE WEEKLY (INFUSION)
     Route: 042

REACTIONS (6)
  - Hemiplegia [Recovered/Resolved]
  - Hemiparesis [Recovered/Resolved]
  - Convulsion [Recovered/Resolved]
  - Brain injury [Unknown]
  - Disease progression [Unknown]
  - Renal cancer [Unknown]
